FAERS Safety Report 10576848 (Version 1)
Quarter: 2014Q4

REPORT INFORMATION
  Report Type: Spontaneous
  Country: FR (occurrence: FR)
  Receive Date: 20141111
  Receipt Date: 20141111
  Transmission Date: 20150529
  Serious: Yes (Congenital Anomaly)
  Sender: FDA-Public Use
  Company Number: FR-B.I. PHARMACEUTICALS,INC./RIDGEFIELD-2014-BI-53462FF

PATIENT
  Age: 0 Year
  Sex: Male
  Weight: 3.8 kg

DRUGS (4)
  1. ALPRAZOLAM. [Suspect]
     Active Substance: ALPRAZOLAM
     Indication: EXPOSURE DURING PREGNANCY
     Route: 064
  2. CATAPRESSAN [Suspect]
     Active Substance: CLONIDINE
     Indication: EXPOSURE DURING PREGNANCY
     Route: 064
  3. TARDYFERON [Suspect]
     Active Substance: FERROUS SULFATE\FOLIC ACID
     Indication: EXPOSURE DURING PREGNANCY
     Route: 064
  4. GAVISCON [Suspect]
     Active Substance: ALUMINUM HYDROXIDE\MAGNESIUM CARBONATE
     Indication: EXPOSURE DURING PREGNANCY
     Route: 064

REACTIONS (1)
  - Hydronephrosis [Not Recovered/Not Resolved]

NARRATIVE: CASE EVENT DATE: 20120215
